FAERS Safety Report 5407045-3 (Version None)
Quarter: 2007Q3

REPORT INFORMATION
  Report Type: 
  Country: None (occurrence: None)
  Receive Date: 20070807
  Receipt Date: 20070727
  Transmission Date: 20080115
  Serious: Yes (Life-Threatening, Hospitalization)
  Sender: FDA-Public Use
  Company Number: CO-AVENTIS-200717120GDDC

PATIENT
  Age: 10 Year
  Sex: Female
  Weight: 34 kg

DRUGS (2)
  1. LANTUS [Suspect]
     Route: 058
     Dates: start: 20070717
  2. HUMALOG [Concomitant]
     Route: 058
     Dates: start: 20050212

REACTIONS (1)
  - DIABETIC KETOACIDOSIS [None]
